FAERS Safety Report 14070832 (Version 3)
Quarter: 2017Q4

REPORT INFORMATION
  Report Type: Spontaneous
  Country: US (occurrence: US)
  Receive Date: 20171010
  Receipt Date: 20171114
  Transmission Date: 20180321
  Serious: Yes (Death)
  Sender: FDA-Public Use
  Company Number: US-BAUSCH-BL-2017-028696

PATIENT
  Age: 71 Year
  Sex: Female
  Weight: 79.45 kg

DRUGS (1)
  1. XIFAXAN [Suspect]
     Active Substance: RIFAXIMIN
     Indication: AMMONIA INCREASED
     Route: 048
     Dates: start: 201305

REACTIONS (5)
  - Hepatic cirrhosis [Fatal]
  - Off label use [Unknown]
  - Anaemia [Fatal]
  - Cardiopulmonary failure [Fatal]
  - Condition aggravated [Fatal]

NARRATIVE: CASE EVENT DATE: 20170911
